FAERS Safety Report 8575762-2 (Version None)
Quarter: 2012Q3

REPORT INFORMATION
  Report Type: 
  Country: None (occurrence: None)
  Receive Date: 20120807
  Receipt Date: 20120806
  Transmission Date: 20120928
  Serious: Yes (Hospitalization)
  Sender: FDA-Public Use
  Company Number: PHHO2010US09695

PATIENT
  Sex: Male
  Weight: 78.6 kg

DRUGS (10)
  1. BENAZEPRIL HYDROCHLORIDE [Concomitant]
  2. AMITIZA [Concomitant]
  3. GLEEVEC [Suspect]
     Indication: CHRONIC MYELOID LEUKAEMIA
     Dosage: 400 MG
     Route: 048
     Dates: start: 20010703, end: 20100712
  4. PROMETHAZINE [Concomitant]
  5. DULCOLAX [Concomitant]
  6. MULTI-VITAMINS [Concomitant]
  7. NORCO [Concomitant]
  8. COLACE [Concomitant]
  9. DARVOCET-N 50 [Concomitant]
  10. LACTULOSE [Concomitant]

REACTIONS (44)
  - WEIGHT DECREASED [None]
  - METASTASES TO SPINE [None]
  - SPINAL CORD COMPRESSION [None]
  - DIARRHOEA [None]
  - BACK PAIN [None]
  - LUMBAR VERTEBRAL FRACTURE [None]
  - ANAEMIA [None]
  - SPINAL DEFORMITY [None]
  - SPINAL COMPRESSION FRACTURE [None]
  - NAUSEA [None]
  - VOMITING [None]
  - METASTASES TO LUNG [None]
  - METASTATIC RENAL CELL CARCINOMA [None]
  - HEPATIC LESION [None]
  - FATIGUE [None]
  - HYPERTENSION [None]
  - METASTASES TO ADRENALS [None]
  - BLOOD SODIUM DECREASED [None]
  - COLON NEOPLASM [None]
  - CONSTIPATION [None]
  - LOSS OF CONTROL OF LEGS [None]
  - METASTASES TO LYMPH NODES [None]
  - INTERVERTEBRAL DISC PROTRUSION [None]
  - EARLY SATIETY [None]
  - FALL [None]
  - HYPOAESTHESIA [None]
  - METASTASES TO BONE [None]
  - METASTASES TO KIDNEY [None]
  - PLATELET COUNT INCREASED [None]
  - HIATUS HERNIA [None]
  - OSTEOPENIA [None]
  - EXCORIATION [None]
  - NERVE COMPRESSION [None]
  - PATHOLOGICAL FRACTURE [None]
  - PYREXIA [None]
  - DECREASED APPETITE [None]
  - WHITE BLOOD CELL COUNT INCREASED [None]
  - CHOLELITHIASIS [None]
  - ILEUS [None]
  - METASTASES TO LIVER [None]
  - TACHYCARDIA [None]
  - BLOOD GLUCOSE INCREASED [None]
  - COMMINUTED FRACTURE [None]
  - RENAL INFARCT [None]
